FAERS Safety Report 10365144 (Version 2)
Quarter: 2014Q3

REPORT INFORMATION
  Report Type: Report from Study
  Country: KR (occurrence: KR)
  Receive Date: 20140806
  Receipt Date: 20140923
  Transmission Date: 20150326
  Serious: Yes (Hospitalization)
  Sender: FDA-Public Use
  Company Number: KR-SA-2014SA102124

PATIENT
  Age: 73 Year
  Sex: Female
  Weight: 65 kg

DRUGS (11)
  1. MULTAQ [Suspect]
     Active Substance: DRONEDARONE
     Indication: ATRIAL FIBRILLATION
     Route: 065
  2. ATORVASTATIN [Concomitant]
     Active Substance: ATORVASTATIN
     Indication: HYPERLIPIDAEMIA
     Dates: start: 20131222
  3. MELOXICAM. [Concomitant]
     Active Substance: MELOXICAM
     Indication: PAIN
     Dates: start: 20130506
  4. ULTRACET [Concomitant]
     Active Substance: ACETAMINOPHEN\TRAMADOL HYDROCHLORIDE
     Indication: PAIN
     Dates: start: 20130506
  5. CONCOR [Concomitant]
     Active Substance: BISOPROLOL FUMARATE
     Indication: HYPERTENSION
     Dates: start: 20130222
  6. MAGNESIUM [Concomitant]
     Active Substance: MAGNESIUM
     Indication: ANTACID THERAPY
     Dates: start: 20131216
  7. MUCOSTA [Concomitant]
     Active Substance: REBAMIPIDE
     Indication: ANTACID THERAPY
     Dates: start: 20130506
  8. HYDROCHLOROTHIAZIDE/LOSARTAN [Concomitant]
     Active Substance: HYDROCHLOROTHIAZIDE\LOSARTAN
     Indication: HYPERTENSION
     Dates: start: 20130222
  9. MOTILIUM [Concomitant]
     Active Substance: DOMPERIDONE
     Indication: ANTACID THERAPY
     Dates: start: 20130506
  10. CLOPIDOGREL [Concomitant]
     Active Substance: CLOPIDOGREL BISULFATE
     Indication: CEREBROVASCULAR ACCIDENT PROPHYLAXIS
     Dates: start: 20130222
  11. HERBAL NOS [Concomitant]
     Active Substance: HERBALS
     Indication: GASTROINTESTINAL DISORDER
     Dates: start: 20130222

REACTIONS (1)
  - Spondylolisthesis [Not Recovered/Not Resolved]

NARRATIVE: CASE EVENT DATE: 20130805
